FAERS Safety Report 8319486-5 (Version None)
Quarter: 2012Q1

REPORT INFORMATION
  Report Type: 
  Country: None (occurrence: None)
  Receive Date: 20120315
  Receipt Date: 20110503
  Transmission Date: 20120608
  Serious: Yes (Other)
  Sender: FDA-Public Use
  Company Number: PHHY2011US10849

PATIENT
  Age: 47 Year
  Sex: Female

DRUGS (7)
  1. GILENYA [Suspect]
     Indication: MULTIPLE SCLEROSIS
     Dosage: 0.5 MG, QD, ORAL
     Route: 048
     Dates: start: 20110204
  2. GABAPENTIN [Concomitant]
  3. DEPAKOTE [Concomitant]
  4. COPAXONE [Concomitant]
  5. PROVIGIL [Concomitant]
  6. PREDNISOLONE [Concomitant]
  7. TRAZODONE HCL [Concomitant]

REACTIONS (7)
  - HYPOAESTHESIA [None]
  - HEART RATE INCREASED [None]
  - PAIN IN EXTREMITY [None]
  - LIP PAIN [None]
  - VISION BLURRED [None]
  - MULTIPLE SCLEROSIS RELAPSE [None]
  - PARAESTHESIA [None]
